FAERS Safety Report 13953329 (Version 7)
Quarter: 2018Q2

REPORT INFORMATION
  Report Type: Spontaneous
  Country: FR (occurrence: FR)
  Receive Date: 20170911
  Receipt Date: 20180529
  Transmission Date: 20180711
  Serious: Yes (Death, Life-Threatening, Other)
  Sender: FDA-Public Use
  Company Number: FR-BAXTER-2017BAX029090

PATIENT
  Age: 25 Year
  Sex: Female
  Weight: 84 kg

DRUGS (24)
  1. ADRENALINE [Suspect]
     Active Substance: EPINEPHRINE
     Indication: CARDIOVASCULAR DISORDER
     Route: 065
  2. NORADRENALINE TARTRATE [Suspect]
     Active Substance: NOREPINEPHRINE BITARTRATE
     Indication: ADVERSE EVENT
     Dosage: UNK
     Route: 065
     Dates: start: 20170715
  3. METHYLPREDNISOLONE. [Suspect]
     Active Substance: METHYLPREDNISOLONE
     Indication: PRODUCT USED FOR UNKNOWN INDICATION
     Dosage: UNK
     Route: 065
     Dates: start: 20170707
  4. TAZOCILLINE [Concomitant]
     Active Substance: PIPERACILLIN SODIUM\TAZOBACTAM SODIUM
     Indication: PRODUCT USED FOR UNKNOWN INDICATION
     Route: 065
  5. DOBUTAMINE [Suspect]
     Active Substance: DOBUTAMINE\DOBUTAMINE HYDROCHLORIDE
     Indication: CARDIOVASCULAR DISORDER
     Dosage: UP TO 1.5MG/KG
     Route: 065
     Dates: start: 201707, end: 201707
  6. CHLORURE DE SODIUM 0,9 % BIOPERF, SOLUTION POUR PERFUSION [Suspect]
     Active Substance: SODIUM CHLORIDE
     Indication: HAEMOFILTRATION
     Dosage: UNK
     Route: 010
  7. SODIUM BICARBONATE. [Suspect]
     Active Substance: SODIUM BICARBONATE
     Indication: HAEMOFILTRATION
     Dosage: SODIUM HYDROGEN CARBONATE
     Route: 065
  8. INSULIN [Suspect]
     Active Substance: INSULIN NOS
     Indication: ADVERSE EVENT
     Dosage: 60 IU, DAILY
     Route: 065
     Dates: start: 20170715
  9. NORADRENALINE TARTRATE [Suspect]
     Active Substance: NOREPINEPHRINE BITARTRATE
     Indication: CARDIOVASCULAR DISORDER
     Dosage: UP TO 1.5MG/KG (NOREPINEPHRINE)
     Route: 065
     Dates: start: 201707, end: 201707
  10. HEPARIN SODIUM. [Concomitant]
     Active Substance: HEPARIN SODIUM
     Indication: PRODUCT USED FOR UNKNOWN INDICATION
     Route: 065
  11. RASBURICASE [Suspect]
     Active Substance: RASBURICASE
     Indication: NEOPLASM PROPHYLAXIS
     Dosage: 1 DF, UNK
     Route: 065
     Dates: start: 20170708
  12. SODIUM BICARBONATE. [Suspect]
     Active Substance: SODIUM BICARBONATE
     Indication: ADVERSE EVENT
     Dosage: 8.4% MOLAR VIALS
     Route: 065
     Dates: start: 20170715
  13. DOBUTAMINE [Suspect]
     Active Substance: DOBUTAMINE\DOBUTAMINE HYDROCHLORIDE
     Indication: ADVERSE EVENT
     Dosage: UNK
     Route: 065
     Dates: start: 201707
  14. ADRENALINE [Suspect]
     Active Substance: EPINEPHRINE
     Route: 065
  15. AMIODARONE HYDROCHLORIDE. [Suspect]
     Active Substance: AMIODARONE HYDROCHLORIDE
     Indication: HAEMOFILTRATION
     Route: 065
  16. NORADRENALINE TARTRATE [Suspect]
     Active Substance: NOREPINEPHRINE BITARTRATE
     Route: 065
  17. PHOXILIUM [Suspect]
     Active Substance: CALCIUM CL\MAGNESIUM CL\POTASSIUM CL\SODIUM BICAR\SODIUM CL\SODIUM PHOSPHATE,DIB
     Indication: HAEMOFILTRATION
     Dosage: UNK
     Route: 010
     Dates: start: 20170715
  18. HEMOSOL B0 [Suspect]
     Active Substance: CALCIUM CL\DEXTROSE\LACTIC ACID\MAGNESIUM CL\POTASSIUM CL\SODIUM BICAR\SODIUM CL
     Indication: HAEMOFILTRATION
     Dosage: 3 L, (3 LITRE(S);EVERY HOUR)
     Route: 042
     Dates: start: 20170715, end: 20170715
  19. DOBUTAMINE [Suspect]
     Active Substance: DOBUTAMINE\DOBUTAMINE HYDROCHLORIDE
     Route: 065
  20. AMIODARONE HYDROCHLORIDE. [Suspect]
     Active Substance: AMIODARONE HYDROCHLORIDE
     Indication: ADVERSE EVENT
     Dosage: 600 MG, UNK
     Route: 065
     Dates: start: 20170715
  21. METHYLPREDNISOLONE. [Concomitant]
     Active Substance: METHYLPREDNISOLONE
     Indication: PRODUCT USED FOR UNKNOWN INDICATION
     Route: 065
     Dates: start: 20170707
  22. ADRENALINE [Suspect]
     Active Substance: EPINEPHRINE
     Indication: ADVERSE EVENT
     Dosage: 8 MG, UNK
     Route: 065
     Dates: start: 20170715
  23. GLUCOSE [Suspect]
     Active Substance: DEXTROSE
     Indication: MEDICATION DILUTION
     Dosage: 500 ML, DAILY
     Route: 065
     Dates: start: 20170715
  24. POTASSIUM CHLORURE AGUETTANT [Suspect]
     Active Substance: POTASSIUM CHLORIDE
     Indication: TUMOUR LYSIS SYNDROME
     Dosage: 5 G, EVERY CYCLE (DAILY). ADDED IN PRE DILUTION BAG, FLOW WAS 1LITER PER HOUR
     Route: 042
     Dates: start: 20170715, end: 20170715

REACTIONS (14)
  - Cerebral haematoma [Fatal]
  - Renal failure [Fatal]
  - Cardiovascular insufficiency [Fatal]
  - Incorrect dose administered [Fatal]
  - General physical health deterioration [Fatal]
  - Blood phosphorus increased [Fatal]
  - Cardio-respiratory arrest [Fatal]
  - Nervous system disorder [Fatal]
  - Respiratory failure [Fatal]
  - Malaise [Fatal]
  - Tumour lysis syndrome [Fatal]
  - Cerebrovascular accident [Fatal]
  - Hyperkalaemia [Fatal]
  - Ventricular fibrillation [Fatal]

NARRATIVE: CASE EVENT DATE: 20170715
